FAERS Safety Report 17062986 (Version 1)
Quarter: 2019Q4

REPORT INFORMATION
  Report Type: Spontaneous
  Country: JP (occurrence: JP)
  Receive Date: 20191122
  Receipt Date: 20191122
  Transmission Date: 20200122
  Serious: Yes (Hospitalization)
  Sender: FDA-Public Use
  Company Number: JP-TEVA-2019-JP-1135527

PATIENT
  Age: 8 Decade
  Sex: Female

DRUGS (8)
  1. AZILECT [Suspect]
     Active Substance: RASAGILINE MESYLATE
     Indication: PARKINSON^S DISEASE
     Dosage: .5 MILLIGRAM DAILY;
     Route: 048
     Dates: start: 20190918, end: 20190924
  2. YODEL [Concomitant]
     Active Substance: SENNA LEAF
  3. RIZE [Concomitant]
     Active Substance: CLOTIAZEPAM
  4. ELIQUIS [Concomitant]
     Active Substance: APIXABAN
  5. AZILECT [Suspect]
     Active Substance: RASAGILINE MESYLATE
     Dosage: 1 MILLIGRAM DAILY;
     Route: 048
     Dates: start: 20190925, end: 20190928
  6. PARKISTON [Concomitant]
     Active Substance: CARBIDOPA\LEVODOPA
  7. BROTIZOLAM [Concomitant]
     Active Substance: BROTIZOLAM
  8. SYMMETREL [Concomitant]
     Active Substance: AMANTADINE HYDROCHLORIDE

REACTIONS (2)
  - Oedema peripheral [Recovered/Resolved]
  - Face oedema [Recovered/Resolved]

NARRATIVE: CASE EVENT DATE: 20190928
